FAERS Safety Report 12512644 (Version 1)
Quarter: 2016Q2

REPORT INFORMATION
  Report Type: Spontaneous
  Country: US (occurrence: None)
  Receive Date: 20160629
  Receipt Date: 20160629
  Transmission Date: 20160815
  Serious: Yes (Other)
  Sender: FDA-Public Use
  Company Number: None

PATIENT
  Sex: Male

DRUGS (2)
  1. RENVELA [Suspect]
     Active Substance: SEVELAMER CARBONATE
     Indication: RENAL DISORDER
     Route: 048
     Dates: start: 20150724
  2. SENSIPAR [Suspect]
     Active Substance: CINACALCET HYDROCHLORIDE
     Indication: RENAL DISORDER
     Dosage: 120MG DAIY AND 30MG AT NIGHT, TWICE DSAILY, BY MOUTH
     Route: 048
     Dates: start: 20150514

REACTIONS (2)
  - Cerebrovascular accident [None]
  - Blood glucose increased [None]
